FAERS Safety Report 18441821 (Version 1)
Quarter: 2020Q4

REPORT INFORMATION
  Report Type: Spontaneous
  Country: US (occurrence: US)
  Receive Date: 20201029
  Receipt Date: 20201029
  Transmission Date: 20210114
  Serious: No
  Sender: FDA-Public Use
  Company Number: US-BIOGEN-2020BI00926060

PATIENT
  Age: 53 Year
  Sex: Female

DRUGS (4)
  1. TECFIDERA [Suspect]
     Active Substance: DIMETHYL FUMARATE
     Route: 065
     Dates: start: 20200917
  2. TECFIDERA [Suspect]
     Active Substance: DIMETHYL FUMARATE
     Route: 048
     Dates: start: 2020
  3. TECFIDERA [Suspect]
     Active Substance: DIMETHYL FUMARATE
     Dosage: 23 DAYS AFTER 120MG DOSE
     Route: 048
     Dates: start: 202009
  4. TECFIDERA [Suspect]
     Active Substance: DIMETHYL FUMARATE
     Indication: MULTIPLE SCLEROSIS
     Dosage: 7 DAYS
     Route: 048
     Dates: start: 202009

REACTIONS (12)
  - Rhinorrhoea [Unknown]
  - Nausea [Unknown]
  - Flushing [Unknown]
  - Dyspepsia [Unknown]
  - Abdominal pain upper [Recovered/Resolved with Sequelae]
  - Nightmare [Unknown]
  - Depression [Unknown]
  - Product dose omission issue [Unknown]
  - Delusion [Unknown]
  - Gastrointestinal disorder [Unknown]
  - Vomiting [Recovered/Resolved with Sequelae]
  - Abdominal discomfort [Unknown]

NARRATIVE: CASE EVENT DATE: 20200917
